FAERS Safety Report 5078479-4 (Version None)
Quarter: 2006Q3

REPORT INFORMATION
  Report Type: 
  Country: None (occurrence: None)
  Receive Date: 20060811
  Receipt Date: 20060803
  Transmission Date: 20061208
  Serious: Yes (Other)
  Sender: FDA-Public Use
  Company Number: CH-SANOFI-SYNTHELABO-A01200606252

PATIENT
  Age: 76 Year
  Sex: Female

DRUGS (8)
  1. EUTHYROX [Concomitant]
     Indication: DRUG USE FOR UNKNOWN INDICATION
     Route: 048
  2. LASIX [Concomitant]
     Indication: HYPERTENSION
     Dosage: UNK
     Route: 048
  3. LASIX [Concomitant]
     Indication: CARDIAC FAILURE
     Dosage: UNK
     Route: 048
  4. BLOPRESS [Concomitant]
     Indication: HYPERTENSION
     Dosage: UNK
     Route: 048
  5. CONCOR [Concomitant]
     Indication: HYPERTENSION
     Route: 048
  6. SIMCORA [Concomitant]
     Indication: HYPERCHOLESTEROLAEMIA
     Route: 048
  7. PLAVIX [Suspect]
     Indication: THROMBOSIS PROPHYLAXIS
     Route: 048
     Dates: start: 20060115, end: 20060801
  8. PLAVIX [Suspect]
     Indication: STENT PLACEMENT
     Route: 048
     Dates: start: 20060115, end: 20060801

REACTIONS (1)
  - EOSINOPHILIC CELLULITIS [None]
